FAERS Safety Report 10211314 (Version 1)
Quarter: 2014Q2

REPORT INFORMATION
  Report Type: Spontaneous
  Country: US (occurrence: None)
  Receive Date: 20140530
  Receipt Date: 20140530
  Transmission Date: 20141212
  Serious: Yes (Disabling)
  Sender: FDA-Public Use
  Company Number: None

PATIENT
  Age: 18 Year
  Sex: Female
  Weight: 63.5 kg

DRUGS (5)
  1. PANTOPRAZOLE [Suspect]
     Indication: VOMITING
     Dosage: 1 PILL
     Route: 048
     Dates: start: 20130619, end: 20140512
  2. PANTOPRAZOLE [Suspect]
     Indication: GASTROOESOPHAGEAL REFLUX DISEASE
     Dosage: 1 PILL
     Route: 048
     Dates: start: 20130619, end: 20140512
  3. GILDES FE [Concomitant]
  4. RANITIDINE [Concomitant]
  5. MELATONIN [Concomitant]

REACTIONS (11)
  - Wrist fracture [None]
  - Pathological fracture [None]
  - Radial nerve injury [None]
  - Amino acid metabolism disorder [None]
  - Thyroid disorder [None]
  - Mitochondrial myopathy [None]
  - Cardiac disorder [None]
  - Renal disorder [None]
  - Lung disorder [None]
  - Quality of life decreased [None]
  - Economic problem [None]
